FAERS Safety Report 7465156-5 (Version None)
Quarter: 2011Q2

REPORT INFORMATION
  Report Type: 
  Country: None (occurrence: None)
  Receive Date: 20110509
  Receipt Date: 20100924
  Transmission Date: 20111010
  Serious: No
  Sender: FDA-Public Use
  Company Number: US-SANOFI-AVENTIS-2010SA058614

PATIENT
  Sex: Female
  Weight: 90.72 kg

DRUGS (19)
  1. LANTUS [Suspect]
     Dosage: DOSE:47 UNIT(S)
     Route: 058
     Dates: start: 20100924
  2. ALAVERT [Concomitant]
     Dosage: TOOK ONE TABLET DAILY.
     Route: 048
  3. ALL OTHER THERAPEUTIC PRODUCTS [Concomitant]
     Dosage: TOOK ONE TABLET DAILY.
  4. GENERAL NUTRIENTS [Concomitant]
     Dosage: TOOK ONE SOFE GEL DAILY.
  5. APIDRA [Suspect]
     Dosage: ON 10-SEP-2010,AND FROM 24-SEP-2010 TO PRESENT,TOOK 27,30 AND 36 DAILY.
     Dates: start: 20100901
  6. CLONIDINE [Suspect]
     Dosage: ONE TABLET (0.2MG) THREE TIMES A DAY.
     Route: 065
     Dates: start: 20080101
  7. FISH OIL [Concomitant]
     Dates: start: 20080101
  8. ARTIFICIAL TEARS [Concomitant]
     Dates: start: 20090101
  9. LANTUS [Suspect]
     Dosage: DOSE:47 UNIT(S)
     Route: 058
     Dates: start: 20090101
  10. ANTIHYPERTENSIVES [Concomitant]
     Dosage: TOOK ONE TABLET (300MG) AT BEDTIME.
  11. VITAMIN B1 TAB [Concomitant]
     Dosage: TOOK TWO TABLETS (500MG) IN THE MORNING AND IN THE EVENING.
  12. VITAMIN B-12 [Concomitant]
     Dosage: TOOK 3 SUBLINGUAL.
     Dates: start: 20100601
  13. VISINE EYE DROPS [Concomitant]
     Dates: start: 20100901
  14. LANTUS [Suspect]
     Dosage: DOSE:48 UNIT(S)
     Route: 058
     Dates: start: 20100923, end: 20100923
  15. SIMVASTATIN [Concomitant]
     Dates: start: 20061020
  16. INSULIN DETEMIR [Concomitant]
  17. APIDRA [Suspect]
     Dosage: TOOK 28,32 AND 40 UNITS.
     Dates: start: 20100316
  18. DIOVAN HCT [Concomitant]
     Dosage: TOOK ONE TABLET DAILY.
  19. CALCIUM CITRATE/VITAMIN D NOS [Concomitant]
     Dosage: TOOK ONE TABLET TWICE A DAY.
     Dates: start: 20080901

REACTIONS (12)
  - OEDEMA PERIPHERAL [None]
  - CONFUSIONAL STATE [None]
  - SWELLING FACE [None]
  - GLYCOSYLATED HAEMOGLOBIN INCREASED [None]
  - ASTHENIA [None]
  - PARAESTHESIA [None]
  - WEIGHT INCREASED [None]
  - PAIN [None]
  - VISION BLURRED [None]
  - ERYTHEMA [None]
  - INSOMNIA [None]
  - BLOOD GLUCOSE FLUCTUATION [None]
